FAERS Safety Report 16539352 (Version 1)
Quarter: 2019Q3

REPORT INFORMATION
  Report Type: Spontaneous
  Country: DK (occurrence: DK)
  Receive Date: 20190708
  Receipt Date: 20190708
  Transmission Date: 20191004
  Serious: Yes (Hospitalization, Other)
  Sender: FDA-Public Use
  Company Number: DK-MICRO LABS LIMITED-ML2019-01526

PATIENT
  Age: 42 Year
  Sex: Male
  Weight: 90 kg

DRUGS (2)
  1. VERAPAMIL HYDROCHLORIDE. [Suspect]
     Active Substance: VERAPAMIL HYDROCHLORIDE
     Dosage: 12G VERAPAMIL RETARD (100 TABLETS)
     Route: 048
  2. ENALAPRIL [Suspect]
     Active Substance: ENALAPRIL
     Dosage: 1G ENALAPRIL (100 TABLETS)
     Route: 048

REACTIONS (12)
  - Pulmonary oedema [Unknown]
  - Anuria [Unknown]
  - Hyperhidrosis [Unknown]
  - Rhythm idioventricular [Unknown]
  - Mental status changes [Unknown]
  - Bezoar [Unknown]
  - Hypervolaemia [Unknown]
  - Electrocardiogram abnormal [Unknown]
  - Blood pressure decreased [Unknown]
  - Respiratory failure [Unknown]
  - Intentional overdose [Unknown]
  - Atrioventricular block complete [Unknown]
